FAERS Safety Report 9241687 (Version 2)
Quarter: 2013Q2

REPORT INFORMATION
  Report Type: Spontaneous
  Country: GB (occurrence: GB)
  Receive Date: 20130419
  Receipt Date: 20130424
  Transmission Date: 20140414
  Serious: Yes (Other)
  Sender: FDA-Public Use
  Company Number: GB-PFIZER INC-2013121734

PATIENT
  Age: 59 Year
  Sex: Male

DRUGS (5)
  1. IBUPROFEN [Suspect]
     Dosage: OCCASIONAL
  2. LOPERAMIDE [Suspect]
     Dosage: UNK
  3. TAMSULOSIN [Suspect]
     Indication: PROSTATE CANCER
     Dosage: UNK
  4. LUTEINIZING HORMONE-RELEASING HORMONE [Suspect]
     Indication: PROSTATE CANCER
     Dosage: UNK
  5. BICALUTAMIDE [Suspect]
     Indication: PROSTATIC SPECIFIC ANTIGEN ABNORMAL
     Dosage: UNK

REACTIONS (1)
  - Acute febrile neutrophilic dermatosis [Recovered/Resolved]
